FAERS Safety Report 7807972-3 (Version None)
Quarter: 2011Q4

REPORT INFORMATION
  Report Type: 
  Country: None (occurrence: None)
  Receive Date: 20111011
  Receipt Date: 20111011
  Transmission Date: 20120403
  Serious: No
  Sender: FDA-Public Use
  Company Number: None

PATIENT
  Age: 32 Year
  Sex: Female
  Weight: 70.306 kg

DRUGS (1)
  1. FACTIVE [Suspect]
     Indication: BRONCHITIS
     Dosage: 320 MG
     Route: 048
     Dates: start: 20111003, end: 20111007

REACTIONS (2)
  - RASH [None]
  - NO THERAPEUTIC RESPONSE [None]
